FAERS Safety Report 5828230-2 (Version None)
Quarter: 2008Q3

REPORT INFORMATION
  Report Type: 
  Country: None (occurrence: None)
  Receive Date: 20080729
  Receipt Date: 20080721
  Transmission Date: 20090109
  Serious: Yes (Hospitalization)
  Sender: FDA-Public Use
  Company Number: 2008BI016696

PATIENT
  Age: 55 Year
  Sex: Female

DRUGS (2)
  1. AVONEX [Suspect]
     Indication: MULTIPLE SCLEROSIS
     Dosage: 30 UG;BIW;IM;30 UG;QW;IM
     Route: 030
     Dates: start: 20030916, end: 20040501
  2. AVONEX [Suspect]
     Indication: MULTIPLE SCLEROSIS
     Dosage: 30 UG;BIW;IM;30 UG;QW;IM
     Route: 030
     Dates: start: 20040501

REACTIONS (4)
  - ABDOMINAL PAIN LOWER [None]
  - CHEST PAIN [None]
  - PANCREATITIS [None]
  - PELVIC FLUID COLLECTION [None]
